FAERS Safety Report 4799429-1 (Version None)
Quarter: 2005Q4

REPORT INFORMATION
  Report Type: 
  Country: None (occurrence: None)
  Receive Date: 20051013
  Receipt Date: 20050928
  Transmission Date: 20060501
  Serious: Yes (Other)
  Sender: FDA-Public Use
  Company Number: 2005123943

PATIENT
  Sex: Female

DRUGS (1)
  1. MEDROXYPROGESTERONE ACETATE [Suspect]
     Indication: MENORRHAGIA
     Dosage: INTRAMUSCULAR
     Route: 030

REACTIONS (2)
  - ANORECTAL DISORDER [None]
  - THROMBOSIS [None]
